FAERS Safety Report 17288328 (Version 2)
Quarter: 2020Q1

REPORT INFORMATION
  Report Type: Spontaneous
  Country: US (occurrence: US)
  Receive Date: 20200120
  Receipt Date: 20200217
  Transmission Date: 20200409
  Serious: No
  Sender: FDA-Public Use
  Company Number: US-GLAXOSMITHKLINE-US2020005552

PATIENT
  Sex: Male

DRUGS (2)
  1. BREO ELLIPTA [Suspect]
     Active Substance: FLUTICASONE FUROATE\VILANTEROL TRIFENATATE
     Indication: INTERSTITIAL LUNG DISEASE
     Dosage: 1 PUFF(S), QD
     Route: 065
     Dates: start: 201910
  2. BREO ELLIPTA [Suspect]
     Active Substance: FLUTICASONE FUROATE\VILANTEROL TRIFENATATE
     Indication: DYSPNOEA

REACTIONS (4)
  - Drug ineffective [Unknown]
  - Off label use [Unknown]
  - Product complaint [Unknown]
  - Product use in unapproved indication [Unknown]
